FAERS Safety Report 10080280 (Version 3)
Quarter: 2015Q3

REPORT INFORMATION
  Report Type: Spontaneous
  Country: US (occurrence: US)
  Receive Date: 20140415
  Receipt Date: 20150817
  Transmission Date: 20151125
  Serious: No
  Sender: FDA-Public Use
  Company Number: US-GILEAD-2014-0099756

PATIENT
  Age: 44 Year
  Sex: Female

DRUGS (1)
  1. LETAIRIS [Suspect]
     Active Substance: AMBRISENTAN
     Indication: PULMONARY ARTERIAL HYPERTENSION
     Dosage: 10 MG, UNK
     Route: 065
     Dates: start: 20110725

REACTIONS (3)
  - Malaise [Unknown]
  - Hysterectomy [Unknown]
  - Fatigue [Unknown]

NARRATIVE: CASE EVENT DATE: 201312
